FAERS Safety Report 20601386 (Version 1)
Quarter: 2022Q1

REPORT INFORMATION
  Report Type: Spontaneous
  Country: US (occurrence: US)
  Receive Date: 20220316
  Receipt Date: 20220316
  Transmission Date: 20220424
  Serious: No
  Sender: FDA-Public Use
  Company Number: US-ALEMBIC PHARMACUETICALS LIMITED-2022SCAL000018

PATIENT

DRUGS (6)
  1. DESVENLAFAXINE SUCCINATE [Suspect]
     Active Substance: DESVENLAFAXINE SUCCINATE
     Indication: Anxiety
     Dosage: 25 MG
     Route: 065
  2. DESVENLAFAXINE SUCCINATE [Suspect]
     Active Substance: DESVENLAFAXINE SUCCINATE
     Dosage: UPPED TO 50MG
     Route: 065
     Dates: start: 20211225
  3. Pfizer COVID pediatric dose [Concomitant]
     Indication: COVID-19
     Dosage: DOSE 1
     Route: 065
     Dates: start: 20210518
  4. Pfizer COVID pediatric dose [Concomitant]
     Dosage: UNK, 2 DOSE
     Route: 065
     Dates: start: 20210609
  5. ALBUTEROL SULFATE [Concomitant]
     Active Substance: ALBUTEROL SULFATE
     Indication: Chest pain
     Dosage: UNK
     Route: 065
  6. PROZAC [Concomitant]
     Active Substance: FLUOXETINE HYDROCHLORIDE
     Indication: Product used for unknown indication
     Dosage: UNK
     Route: 065

REACTIONS (7)
  - Muscle rigidity [Unknown]
  - Gait disturbance [Unknown]
  - Condition aggravated [Unknown]
  - Joint range of motion decreased [Unknown]
  - Weight decreased [Unknown]
  - Blood glucose decreased [Unknown]
  - Decreased appetite [Unknown]
